FAERS Safety Report 14935892 (Version 2)
Quarter: 2018Q2

REPORT INFORMATION
  Report Type: Spontaneous
  Country: US (occurrence: US)
  Receive Date: 20180524
  Receipt Date: 20180606
  Transmission Date: 20180711
  Serious: Yes (Death, Hospitalization)
  Sender: FDA-Public Use
  Company Number: US-TEVA-2018-US-895042

PATIENT
  Age: 69 Year
  Sex: Female

DRUGS (4)
  1. MYCOPHENOLATE MOFETIL. [Suspect]
     Active Substance: MYCOPHENOLATE MOFETIL
     Indication: IMMUNOSUPPRESSANT DRUG THERAPY
     Route: 065
  2. IPILIMUMAB [Suspect]
     Active Substance: IPILIMUMAB
     Route: 065
  3. CYCLOPHOSPHAMIDE. [Suspect]
     Active Substance: CYCLOPHOSPHAMIDE
     Indication: IMMUNOSUPPRESSANT DRUG THERAPY
     Route: 065
  4. NIVOLUMAB [Suspect]
     Active Substance: NIVOLUMAB

REACTIONS (9)
  - Myocarditis [Unknown]
  - Multiple organ dysfunction syndrome [Fatal]
  - Myositis [Unknown]
  - Rhabdomyolysis [Unknown]
  - Liver function test increased [Unknown]
  - Atrioventricular block [Unknown]
  - Death [Fatal]
  - Bundle branch block [Unknown]
  - Renal failure [Unknown]
